FAERS Safety Report 6915457-1 (Version None)
Quarter: 2010Q3

REPORT INFORMATION
  Report Type: 
  Country: None (occurrence: None)
  Receive Date: 20100809
  Receipt Date: 20100629
  Transmission Date: 20110219
  Serious: No
  Sender: FDA-Public Use
  Company Number: US-ABBOTT-10P-163-0655084-00

PATIENT
  Sex: Male

DRUGS (4)
  1. DEPAKOTE ER [Suspect]
     Indication: AFFECTIVE DISORDER
     Dates: start: 20080901, end: 20091001
  2. DEPAKOTE ER [Suspect]
     Dates: start: 20100401
  3. DEPAKOTE ER [Suspect]
     Dates: start: 20100610
  4. LORAZEPAM [Concomitant]
     Indication: AFFECTIVE DISORDER

REACTIONS (1)
  - MEDICATION RESIDUE [None]
